FAERS Safety Report 6504911-2 (Version None)
Quarter: 2009Q4

REPORT INFORMATION
  Report Type: 
  Country: None (occurrence: None)
  Receive Date: 20091218
  Receipt Date: 20091209
  Transmission Date: 20100525
  Serious: No
  Sender: FDA-Public Use
  Company Number: BE-ASTRAZENECA-2009SE22760

PATIENT
  Sex: Female

DRUGS (3)
  1. SEROQUEL [Suspect]
     Route: 048
     Dates: start: 20090217, end: 20091023
  2. SEROQUEL [Suspect]
     Route: 048
     Dates: start: 20091023
  3. LAMOTRIGINE [Concomitant]

REACTIONS (1)
  - LEUKOPENIA [None]
